FAERS Safety Report 7938483-2 (Version None)
Quarter: 2011Q4

REPORT INFORMATION
  Report Type: 
  Country: None (occurrence: None)
  Receive Date: 20111123
  Receipt Date: 20111114
  Transmission Date: 20120403
  Serious: Yes (Hospitalization, Other)
  Sender: FDA-Public Use
  Company Number: US-ASTRAZENECA-2011SE56461

PATIENT
  Age: 64 Year
  Sex: Female
  Weight: 88.9 kg

DRUGS (21)
  1. CRESTOR [Suspect]
     Indication: HYPERLIPIDAEMIA
     Route: 048
  2. XANAX [Concomitant]
     Dosage: 1 TABLET 3 TIMES DAILY AS NEEDED
     Route: 048
  3. POTASSIUM CHLORIDE [Concomitant]
  4. ACETAMINOPHEN AND HYDROCODONE BITARTRATE [Concomitant]
     Dosage: 7.5-500 MG, 1 TABLET TWICE DAILY AS NEEDED
     Route: 048
     Dates: start: 20100909
  5. TOPROL-XL [Suspect]
     Dosage: GENERIC
     Route: 048
  6. TRAVATAN [Concomitant]
     Route: 047
  7. ALPRAZOLAM [Concomitant]
     Route: 048
  8. ZOLOFT [Concomitant]
     Route: 048
  9. DILTIAZEM HCL [Concomitant]
     Route: 048
  10. TOPROL-XL [Suspect]
     Route: 048
  11. LASIX [Concomitant]
     Route: 048
  12. NORCO [Concomitant]
     Dosage: 10/325 ONE EVERY FOUR HOURS AS NEEDED
  13. BENICAR HCT [Concomitant]
     Dosage: 40-25 MG DAILY
     Route: 048
     Dates: start: 20100715
  14. LOPRESSOR [Concomitant]
     Route: 048
  15. CARDIZEM [Concomitant]
  16. ASPIRIN [Concomitant]
     Route: 048
  17. ZETIA [Concomitant]
     Route: 048
  18. ASPIRIN [Concomitant]
     Route: 048
  19. PLAVIX [Concomitant]
     Route: 048
     Dates: start: 20090813
  20. CARTIA XT [Concomitant]
     Route: 048
  21. FLUOCINONIDE [Concomitant]
     Dosage: TWICE DAILY
     Dates: start: 20110210

REACTIONS (38)
  - DIVERTICULUM [None]
  - CEREBROVASCULAR ACCIDENT [None]
  - CAROTID ARTERY STENOSIS [None]
  - HYPERLIPIDAEMIA [None]
  - OBESITY [None]
  - NOCTURIA [None]
  - MUSCLE SPASMS [None]
  - OEDEMA PERIPHERAL [None]
  - STENT MALFUNCTION [None]
  - MENOPAUSE [None]
  - INTERMITTENT CLAUDICATION [None]
  - PAIN IN EXTREMITY [None]
  - DYSHIDROSIS [None]
  - PALPITATIONS [None]
  - CORONARY ARTERY DISEASE [None]
  - CHEST PAIN [None]
  - GENERALISED ANXIETY DISORDER [None]
  - HYPERTENSION [None]
  - GASTROOESOPHAGEAL REFLUX DISEASE [None]
  - CAROTID ARTERIOSCLEROSIS [None]
  - WEIGHT INCREASED [None]
  - PLEURAL EFFUSION [None]
  - ACUTE PULMONARY OEDEMA [None]
  - POLYURIA [None]
  - DYSPNOEA [None]
  - OSTEOARTHRITIS [None]
  - LEFT VENTRICULAR DYSFUNCTION [None]
  - COLONIC POLYP [None]
  - FATIGUE [None]
  - CATARACT [None]
  - CORONARY ARTERY STENOSIS [None]
  - CONSTIPATION [None]
  - MYOCARDIAL INFARCTION [None]
  - BLOOD GLUCOSE INCREASED [None]
  - CORONARY ARTERY OCCLUSION [None]
  - ATELECTASIS [None]
  - POLYDIPSIA [None]
  - ARTHRALGIA [None]
